FAERS Safety Report 8431134-2 (Version None)
Quarter: 2012Q2

REPORT INFORMATION
  Report Type: 
  Country: None (occurrence: None)
  Receive Date: 20120612
  Receipt Date: 20120604
  Transmission Date: 20120825
  Serious: Yes (Hospitalization, Other)
  Sender: FDA-Public Use
  Company Number: US-MERCK-1201USA01965

PATIENT
  Age: 41 Year
  Sex: Male
  Weight: 81 kg

DRUGS (11)
  1. VITAMINS (UNSPECIFIED) [Concomitant]
     Route: 065
     Dates: start: 19900101, end: 20080101
  2. CALCIUM (UNSPECIFIED) [Concomitant]
     Indication: OSTEOPOROSIS
     Route: 065
  3. FOSAMAX [Suspect]
     Indication: OSTEOPOROSIS
     Route: 048
     Dates: start: 20000101, end: 20080101
  4. SEROQUEL [Concomitant]
     Indication: BIPOLAR DISORDER
     Route: 065
  5. LAMIVUDINE [Concomitant]
     Indication: HIV TEST POSITIVE
     Route: 065
  6. CALCIUM (UNSPECIFIED) [Concomitant]
     Indication: OSTEOARTHRITIS
     Route: 065
  7. NORVIR [Concomitant]
     Indication: HIV TEST POSITIVE
     Route: 065
  8. ABACAVIR SULFATE [Concomitant]
     Indication: HIV TEST POSITIVE
     Route: 065
  9. FOSAMAX [Suspect]
     Indication: OSTEOPENIA
     Route: 048
     Dates: start: 20000101, end: 20080101
  10. EFFEXOR XR [Concomitant]
     Indication: BIPOLAR DISORDER
     Route: 065
  11. VIREAD [Concomitant]
     Indication: HIV TEST POSITIVE
     Route: 065

REACTIONS (62)
  - COAGULOPATHY [None]
  - HYPOKALAEMIA [None]
  - SPLENIC CALCIFICATION [None]
  - SINUS TACHYCARDIA [None]
  - URINARY TRACT INFECTION [None]
  - HEPATOBILIARY SCAN ABNORMAL [None]
  - CARDIOMYOPATHY [None]
  - ACIDOSIS [None]
  - RENAL FAILURE ACUTE [None]
  - PANCREATITIS [None]
  - OVERDOSE [None]
  - TUBULOINTERSTITIAL NEPHRITIS [None]
  - FEMUR FRACTURE [None]
  - HYPONATRAEMIA [None]
  - HYPERTENSION [None]
  - BREAST MASS [None]
  - DYSPNOEA [None]
  - VITAMIN D DECREASED [None]
  - GASTRITIS [None]
  - CHEST PAIN [None]
  - CONVULSION [None]
  - FOOT FRACTURE [None]
  - ANAEMIA OF CHRONIC DISEASE [None]
  - TACHYCARDIA [None]
  - DIARRHOEA [None]
  - NASAL SEPTUM DEVIATION [None]
  - LYMPH NODE CALCIFICATION [None]
  - LIPODYSTROPHY ACQUIRED [None]
  - ANDROGEN DEFICIENCY [None]
  - PULMONARY CALCIFICATION [None]
  - FALL [None]
  - HYPERTRIGLYCERIDAEMIA [None]
  - RENAL FAILURE CHRONIC [None]
  - APHASIA [None]
  - SUICIDE ATTEMPT [None]
  - POSTOPERATIVE FEVER [None]
  - MENTAL STATUS CHANGES [None]
  - ARTHRITIS [None]
  - PANCREATIC DISORDER [None]
  - MYOPIA [None]
  - SENSORY DISTURBANCE [None]
  - ECCHYMOSIS [None]
  - CONSTIPATION [None]
  - NEPHROLITHIASIS [None]
  - CARDIOMEGALY [None]
  - BLOOD CHOLESTEROL INCREASED [None]
  - ANAEMIA POSTOPERATIVE [None]
  - MENTAL DISORDER [None]
  - AORTIC ARTERIOSCLEROSIS [None]
  - URINARY RETENTION [None]
  - LEFT VENTRICULAR FAILURE [None]
  - GALLBLADDER DISORDER [None]
  - DIABETES MELLITUS [None]
  - HERNIA REPAIR [None]
  - GASTROOESOPHAGEAL REFLUX DISEASE [None]
  - APLASTIC ANAEMIA [None]
  - GLOMERULONEPHRITIS [None]
  - RENAL IMPAIRMENT [None]
  - BURSITIS [None]
  - RESTLESSNESS [None]
  - DELIRIUM [None]
  - CEREBRAL ATROPHY [None]
